FAERS Safety Report 9929312 (Version 2)
Quarter: 2015Q4

REPORT INFORMATION
  Report Type: Report from Study
  Country: US (occurrence: US)
  Receive Date: 20140227
  Receipt Date: 20151203
  Transmission Date: 20160305
  Serious: Yes (Hospitalization)
  Sender: FDA-Public Use
  Company Number: US-ROCHE-1329069

PATIENT
  Age: 39 Year
  Sex: Male
  Weight: 87.17 kg

DRUGS (21)
  1. AVASTIN [Suspect]
     Active Substance: BEVACIZUMAB
     Indication: RENAL CANCER
     Route: 042
  2. ONDANSETRON [Concomitant]
     Active Substance: ONDANSETRON
     Dosage: PRN
     Route: 048
  3. ZOLEDRONATE [Concomitant]
     Active Substance: ZOLEDRONIC ACID
     Dosage: 24 CYCLES
     Route: 042
  4. CELEBREX [Concomitant]
     Active Substance: CELECOXIB
     Route: 048
  5. FENTANYL. [Concomitant]
     Active Substance: FENTANYL
     Indication: BONE PAIN
     Route: 062
  6. ONDANSETRON [Concomitant]
     Active Substance: ONDANSETRON
     Route: 042
  7. ACTIQ [Concomitant]
     Active Substance: FENTANYL CITRATE
     Dosage: BID OR TID
     Route: 048
  8. WARFARIN [Concomitant]
     Active Substance: WARFARIN
     Dosage: EVERY DAY
     Route: 048
  9. PEPCID [Concomitant]
     Active Substance: FAMOTIDINE
     Route: 048
  10. WARFARIN [Concomitant]
     Active Substance: WARFARIN
     Dosage: EVERY DAY
     Route: 048
  11. DEXAMETHASONE. [Concomitant]
     Active Substance: DEXAMETHASONE
     Dosage: 1 MG IN AM, 0.5 MG IN PM
     Route: 065
  12. EMLA [Concomitant]
     Active Substance: LIDOCAINE\PRILOCAINE
     Dosage: APPLY GENEROUS AMOUNT TO PORT SITE 1 HR BEFORE USE
     Route: 061
  13. FENTORA [Concomitant]
     Active Substance: FENTANYL CITRATE
     Dosage: PRN
     Route: 048
  14. DEXAMETHASONE. [Concomitant]
     Active Substance: DEXAMETHASONE
     Route: 042
  15. GEMZAR [Suspect]
     Active Substance: GEMCITABINE HYDROCHLORIDE
     Indication: PRODUCT USED FOR UNKNOWN INDICATION
     Route: 042
  16. FENTANYL. [Concomitant]
     Active Substance: FENTANYL
     Route: 062
  17. WARFARIN [Concomitant]
     Active Substance: WARFARIN
     Dosage: 2.5MG MWF, 5MG ON REMAINING 4 DAYS
     Route: 048
  18. ROXANOL [Concomitant]
     Active Substance: MORPHINE SULFATE
     Indication: BONE PAIN
     Dosage: Q2-4H PRN
     Route: 048
  19. XELODA [Suspect]
     Active Substance: CAPECITABINE
     Indication: PRODUCT USED FOR UNKNOWN INDICATION
     Dosage: DAYS 1-21
     Route: 048
  20. COLACE [Concomitant]
     Active Substance: DOCUSATE SODIUM
     Dosage: PRN
     Route: 048
  21. DEXAMETHASONE. [Concomitant]
     Active Substance: DEXAMETHASONE
     Route: 048

REACTIONS (25)
  - Anxiety [Unknown]
  - Acetabulum fracture [Unknown]
  - Pain in extremity [Unknown]
  - Epistaxis [Unknown]
  - Feeling abnormal [Unknown]
  - Skin lesion [Recovering/Resolving]
  - Pain [Unknown]
  - Flushing [Unknown]
  - Constipation [Recovered/Resolved]
  - Hypertension [Unknown]
  - Haemorrhagic diathesis [Unknown]
  - Deep vein thrombosis [Unknown]
  - Disease progression [Unknown]
  - Dry skin [Unknown]
  - Dermatitis acneiform [Unknown]
  - Fatigue [Unknown]
  - Pelvic pain [Unknown]
  - Swelling [Recovering/Resolving]
  - Fungal skin infection [Unknown]
  - Dehydration [Unknown]
  - Mucosal inflammation [Unknown]
  - Decreased appetite [Unknown]
  - Tenderness [Unknown]
  - Gait disturbance [Unknown]
  - Arthralgia [Unknown]

NARRATIVE: CASE EVENT DATE: 20110111
